FAERS Safety Report 8386247-0 (Version None)
Quarter: 2012Q2

REPORT INFORMATION
  Report Type: 
  Country: None (occurrence: None)
  Receive Date: 20120525
  Receipt Date: 20120518
  Transmission Date: 20120825
  Serious: Yes (Other)
  Sender: FDA-Public Use
  Company Number: US-PFIZER INC-2012122439

PATIENT
  Sex: Male

DRUGS (6)
  1. SUTENT [Suspect]
     Indication: RENAL CELL CARCINOMA
     Dosage: 50 MG, UNK
     Dates: start: 20120410, end: 20120101
  2. METOPROLOL [Concomitant]
     Dosage: UNK
  3. PRILOSEC [Concomitant]
     Dosage: UNK
  4. SUTENT [Suspect]
     Dosage: UNK
     Dates: start: 20120513
  5. OXYCODONE [Concomitant]
     Dosage: UNK
  6. WARFARIN [Concomitant]
     Dosage: UNK

REACTIONS (8)
  - HEADACHE [None]
  - VENA CAVA THROMBOSIS [None]
  - RASH [None]
  - JOINT SWELLING [None]
  - PAIN IN EXTREMITY [None]
  - WEIGHT FLUCTUATION [None]
  - RENAL DISORDER [None]
  - NAUSEA [None]
